FAERS Safety Report 18027936 (Version 1)
Quarter: 2020Q3

REPORT INFORMATION
  Report Type: Spontaneous
  Country: CA (occurrence: CA)
  Receive Date: 20200715
  Receipt Date: 20200715
  Transmission Date: 20201103
  Serious: Yes (Other)
  Sender: FDA-Public Use
  Company Number: CA-ANIPHARMA-2020-CA-001264

PATIENT
  Age: 52 Year
  Sex: Female

DRUGS (2)
  1. ANASTROZOLE. [Suspect]
     Active Substance: ANASTROZOLE
     Indication: BREAST CANCER
     Dosage: 1 MG QD
     Route: 048
  2. CAPECITABINE. [Suspect]
     Active Substance: CAPECITABINE
     Route: 065

REACTIONS (20)
  - Back pain [Unknown]
  - Dysuria [Unknown]
  - Metastases to liver [Unknown]
  - Palmar-plantar erythrodysaesthesia syndrome [Unknown]
  - Urge incontinence [Unknown]
  - Breast cancer metastatic [Unknown]
  - Arthralgia [Unknown]
  - Human epidermal growth factor receptor negative [Unknown]
  - Pelvic mass [Unknown]
  - Progesterone receptor assay positive [Unknown]
  - Vertebral column mass [Unknown]
  - Hepatic steatosis [Unknown]
  - Oestrogen receptor assay positive [Unknown]
  - Uterine enlargement [Unknown]
  - Clubbing [Unknown]
  - Ovarian mass [Unknown]
  - Uterine leiomyoma [Unknown]
  - Abdominal lymphadenopathy [Unknown]
  - Frequent bowel movements [Unknown]
  - Carbohydrate antigen 15-3 increased [Unknown]
